FAERS Safety Report 16277278 (Version 1)
Quarter: 2019Q2

REPORT INFORMATION
  Report Type: Spontaneous
  Country: US (occurrence: US)
  Receive Date: 20190506
  Receipt Date: 20190506
  Transmission Date: 20190711
  Serious: Yes (Hospitalization)
  Sender: FDA-Public Use
  Company Number: None

PATIENT
  Sex: Male

DRUGS (11)
  1. ACYCLOVIR / ALBUTEROL [Concomitant]
  2. VITAMIN B12 / VITAMIN D [Concomitant]
  3. ASPIRIN / AZITHROMYCIN [Concomitant]
  4. NIACIN / PANTOPRAZOLE [Concomitant]
  5. PREDNISONE / SYNTHROID [Concomitant]
  6. CYANOCOBALAM / FOLIC ACID [Concomitant]
  7. CYCLOSPORINE. [Suspect]
     Active Substance: CYCLOSPORINE
     Indication: LUNG TRANSPLANT
     Route: 048
     Dates: start: 20170825
  8. BACTRIM / CALCIUM [Concomitant]
  9. METOPROLOL / MYCOPHENOLIC [Concomitant]
  10. MYCOPHENOLATE [Suspect]
     Active Substance: MYCOPHENOLIC ACID
     Indication: LUNG TRANSPLANT
     Route: 048
     Dates: start: 20170726
  11. CYCLOSPORINE / ITRACONAZOLE [Concomitant]

REACTIONS (1)
  - Hospitalisation [None]
